FAERS Safety Report 14657092 (Version 1)
Quarter: 2018Q1

REPORT INFORMATION
  Report Type: Report from Study
  Country: US (occurrence: US)
  Receive Date: 20180319
  Receipt Date: 20180319
  Transmission Date: 20180509
  Serious: Yes (Death, Hospitalization)
  Sender: FDA-Public Use
  Company Number: US-ACTELION-A-US2018-167633

PATIENT
  Age: 77 Year
  Sex: Female

DRUGS (18)
  1. PILOCARPINE. [Concomitant]
     Active Substance: PILOCARPINE
  2. CYCLOBENZAPRINE. [Concomitant]
     Active Substance: CYCLOBENZAPRINE
  3. FUROSEMIDE. [Concomitant]
     Active Substance: FUROSEMIDE
  4. MYCOPHENOLATE [Concomitant]
     Active Substance: MYCOPHENOLIC ACID
  5. SMZ-TMP [Concomitant]
     Active Substance: SULFAMETHOXAZOLE\TRIMETHOPRIM
  6. CLOTRIMAZOLE. [Concomitant]
     Active Substance: CLOTRIMAZOLE
  7. TRIAMCINOLON [Concomitant]
  8. TAC [Concomitant]
     Active Substance: TRIAMCINOLONE ACETONIDE
  9. PROAIR HFA [Concomitant]
     Active Substance: ALBUTEROL SULFATE
  10. SILDENAFIL. [Concomitant]
     Active Substance: SILDENAFIL
  11. OPSUMIT [Suspect]
     Active Substance: MACITENTAN
     Indication: PULMONARY ARTERIAL HYPERTENSION
     Dosage: UNK
     Route: 048
     Dates: start: 20180206, end: 20180223
  12. AMOXICILLIN. [Concomitant]
     Active Substance: AMOXICILLIN
  13. PREDNISONE. [Concomitant]
     Active Substance: PREDNISONE
  14. PILOCARPINE. [Concomitant]
     Active Substance: PILOCARPINE
  15. VELETRI [Suspect]
     Active Substance: EPOPROSTENOL
     Indication: PULMONARY ARTERIAL HYPERTENSION
     Dosage: 10 NG/KG, PER MIN
     Route: 042
     Dates: start: 20180125
  16. FLUTICASONE. [Concomitant]
     Active Substance: FLUTICASONE
  17. NYSTATIN. [Concomitant]
     Active Substance: NYSTATIN
  18. HYDROCODONE [Concomitant]
     Active Substance: HYDROCODONE

REACTIONS (3)
  - Pulmonary arterial hypertension [Recovering/Resolving]
  - Condition aggravated [Recovering/Resolving]
  - Death [Fatal]

NARRATIVE: CASE EVENT DATE: 20180223
